FAERS Safety Report 4812127-0 (Version None)
Quarter: 2005Q4

REPORT INFORMATION
  Report Type: 
  Country: None (occurrence: None)
  Receive Date: 20051028
  Receipt Date: 20040506
  Transmission Date: 20060501
  Serious: No
  Sender: FDA-Public Use
  Company Number: US-GLAXOSMITHKLINE-A0509806A

PATIENT
  Age: 70 Year
  Sex: Female

DRUGS (7)
  1. ADVAIR DISKUS 100/50 [Suspect]
     Indication: CHRONIC OBSTRUCTIVE PULMONARY DISEASE
     Dosage: 1PUFF TWICE PER DAY
     Route: 055
     Dates: start: 20031001
  2. SYNTHROID [Concomitant]
  3. WARFARIN [Concomitant]
  4. FOSAMAX [Concomitant]
  5. VITAMINS [Concomitant]
  6. DURICEF [Concomitant]
  7. DARVOCET [Concomitant]

REACTIONS (3)
  - CYST [None]
  - INFECTION [None]
  - SWELLING FACE [None]
